FAERS Safety Report 24813802 (Version 1)
Quarter: 2025Q1

REPORT INFORMATION
  Report Type: Spontaneous
  Country: US (occurrence: US)
  Receive Date: 20250107
  Receipt Date: 20250107
  Transmission Date: 20250408
  Serious: Yes (Other)
  Sender: DAIICHI
  Company Number: US-DSJP-DS-2025-117931-US

PATIENT
  Sex: Female

DRUGS (1)
  1. ENHERTU [Suspect]
     Active Substance: FAM-TRASTUZUMAB DERUXTECAN-NXKI
     Indication: Breast cancer metastatic
     Route: 065
     Dates: start: 202401, end: 202401

REACTIONS (4)
  - Pneumonitis [Recovered/Resolved]
  - Fatigue [Recovered/Resolved]
  - Dyspnoea [Recovered/Resolved]
  - Pulmonary embolism [Unknown]

NARRATIVE: CASE EVENT DATE: 20240101
